FAERS Safety Report 12402440 (Version 2)
Quarter: 2016Q2

REPORT INFORMATION
  Report Type: Spontaneous
  Country: US (occurrence: US)
  Receive Date: 20160525
  Receipt Date: 20160527
  Transmission Date: 20160815
  Serious: No
  Sender: FDA-Public Use
  Company Number: US-SA-2016SA040760

PATIENT
  Age: 61 Year
  Sex: Male

DRUGS (1)
  1. LANTUS SOLOSTAR [Suspect]
     Active Substance: INSULIN GLARGINE
     Indication: TYPE 2 DIABETES MELLITUS
     Dosage: DOSE: 23 UNITS, 26 UNITS?FREQUENCY: IN MORNING AND EVENING
     Route: 065
     Dates: start: 2011

REACTIONS (2)
  - Foot operation [Unknown]
  - Drug administration error [Unknown]
